FAERS Safety Report 17567866 (Version 1)
Quarter: 2020Q1

REPORT INFORMATION
  Report Type: Spontaneous
  Country: US (occurrence: US)
  Receive Date: 20200320
  Receipt Date: 20200320
  Transmission Date: 20200409
  Serious: No
  Sender: FDA-Public Use
  Company Number: US-ELI_LILLY_AND_COMPANY-US202003009684

PATIENT
  Sex: Female

DRUGS (3)
  1. EMGALITY [Suspect]
     Active Substance: GALCANEZUMAB-GNLM
     Dosage: 1 DOSAGE FORM, MONTHLY (1/M)
     Route: 065
  2. EMGALITY [Suspect]
     Active Substance: GALCANEZUMAB-GNLM
     Indication: MIGRAINE
     Dosage: 2 DOSAGE FORM, LOADING DOSE
     Route: 065
     Dates: start: 202002
  3. LYRICA [Concomitant]
     Active Substance: PREGABALIN

REACTIONS (4)
  - Asthenia [Unknown]
  - Fatigue [Unknown]
  - Fear of falling [Unknown]
  - Dizziness [Unknown]
